FAERS Safety Report 7357503-X (Version None)
Quarter: 2011Q1

REPORT INFORMATION
  Report Type: 
  Country: None (occurrence: None)
  Receive Date: 20110317
  Receipt Date: 20110307
  Transmission Date: 20110831
  Serious: Yes (Death, Other)
  Sender: FDA-Public Use
  Company Number: PHHY2010JP07186

PATIENT
  Sex: Female
  Weight: 46 kg

DRUGS (14)
  1. EXJADE [Suspect]
     Indication: IRON OVERLOAD
     Dosage: 500 MG DAILY
     Route: 048
     Dates: start: 20090811, end: 20090824
  2. MUCOSTA [Concomitant]
     Indication: HEPATITIS C
     Dosage: 300 MG DAILY
     Route: 048
     Dates: start: 20090824, end: 20091219
  3. GASTER D [Concomitant]
     Indication: HEPATITIS C
     Dosage: 40 MG DAILY
     Route: 048
     Dates: start: 20090824, end: 20091219
  4. RED CELLS MAP [Concomitant]
     Dosage: 2 U, QW2
     Dates: start: 20091001, end: 20091201
  5. CYLOCIDE [Concomitant]
     Indication: MYELODYSPLASTIC SYNDROME
     Dosage: 60 MG DAILY
     Route: 065
     Dates: start: 20090826, end: 20091112
  6. LASIX [Concomitant]
     Indication: HEPATITIS C
     Dosage: 20 MG DAILY
     Route: 045
     Dates: start: 20091102, end: 20091217
  7. RED CELLS MAP [Concomitant]
     Dosage: 2 U, EVERY 2 WEEKS
     Dates: start: 20090811, end: 20090830
  8. URSO 250 [Concomitant]
     Indication: HEPATITIS C
     Dosage: 300 MG DAILY
     Route: 048
     Dates: start: 20090918, end: 20091219
  9. OLMETEC [Concomitant]
     Indication: HEPATITIS C
     Dosage: 20 MG DAILY
     Route: 048
     Dates: start: 20090918, end: 20091029
  10. CYLOCIDE [Concomitant]
     Indication: REFRACTORY ANAEMIA WITH AN EXCESS OF BLASTS
  11. ZYLORIC [Concomitant]
     Indication: HEPATITIS C
     Dosage: 100 MG DAILY
     Route: 048
     Dates: start: 20090824, end: 20091219
  12. RED CELLS MAP [Concomitant]
     Dosage: 2 U, QW
     Dates: start: 20090901, end: 20090930
  13. DAUNORUBICIN HCL [Concomitant]
     Indication: MYELODYSPLASTIC SYNDROME
     Dosage: 40 MG DAILY
     Route: 065
     Dates: start: 20090826, end: 20090829
  14. DAUNORUBICIN HCL [Concomitant]
     Indication: REFRACTORY ANAEMIA WITH AN EXCESS OF BLASTS

REACTIONS (4)
  - NEOPLASM MALIGNANT [None]
  - DISEASE PROGRESSION [None]
  - WHITE BLOOD CELL COUNT DECREASED [None]
  - MYELODYSPLASTIC SYNDROME [None]
